FAERS Safety Report 6982980-3 (Version None)
Quarter: 2010Q3

REPORT INFORMATION
  Report Type: 
  Country: None (occurrence: None)
  Receive Date: 20100914
  Receipt Date: 20100506
  Transmission Date: 20110219
  Serious: No
  Sender: FDA-Public Use
  Company Number: US-PFIZER INC-2010057691

PATIENT

DRUGS (4)
  1. LYRICA [Suspect]
     Dosage: UNK
  2. BACLOFEN [Suspect]
     Dosage: UNK
  3. TOPAMAX [Suspect]
     Dosage: UNK
  4. TRAMADOL HYDROCHLORIDE [Suspect]
     Dosage: UNK

REACTIONS (1)
  - RASH [None]
